FAERS Safety Report 9295029 (Version 3)
Quarter: 2013Q2

REPORT INFORMATION
  Report Type: Report from Study
  Country: CA (occurrence: CA)
  Receive Date: 20130517
  Receipt Date: 20130614
  Transmission Date: 20140414
  Serious: Yes (Other)
  Sender: FDA-Public Use
  Company Number: CA-JNJFOC-20130508197

PATIENT
  Age: 46 Year
  Sex: Male
  Weight: 115 kg

DRUGS (2)
  1. REMICADE [Suspect]
     Indication: CROHN^S DISEASE
     Route: 042
     Dates: start: 20130205
  2. REMICADE [Suspect]
     Indication: CROHN^S DISEASE
     Route: 042
     Dates: start: 20130319

REACTIONS (3)
  - Scrotal swelling [Unknown]
  - Abscess rupture [Not Recovered/Not Resolved]
  - Intestinal obstruction [Recovered/Resolved]
